FAERS Safety Report 5466750-3 (Version None)
Quarter: 2007Q3

REPORT INFORMATION
  Report Type: 
  Country: None (occurrence: None)
  Receive Date: 20070925
  Receipt Date: 20070912
  Transmission Date: 20080115
  Serious: Yes (Other)
  Sender: FDA-Public Use
  Company Number: BE-ELI_LILLY_AND_COMPANY-BE200705005000

PATIENT
  Age: 39 Year
  Sex: Female

DRUGS (6)
  1. EMCONCOR [Concomitant]
     Indication: CARDIAC DISORDER
     Dosage: UNK, UNKNOWN
     Route: 065
  2. EFFEXOR [Concomitant]
     Dosage: 225 MG, UNKNOWN
     Route: 065
     Dates: start: 20061026
  3. XANAX [Concomitant]
     Dosage: 0.25 MG, UNKNOWN
     Route: 065
     Dates: start: 20061026
  4. ZYPREXA [Suspect]
     Indication: MAJOR DEPRESSION
     Dosage: 7.5 MG, UNKNOWN
     Route: 065
  5. ZYPREXA [Suspect]
     Dosage: 10 MG, UNKNOWN
     Route: 065
     Dates: start: 20061222, end: 20070516
  6. ZYPREXA [Suspect]
     Dosage: 5 MG, UNKNOWN
     Route: 065
     Dates: start: 20061026

REACTIONS (2)
  - ABORTION SPONTANEOUS [None]
  - DRUG EXPOSURE DURING PREGNANCY [None]
